FAERS Safety Report 5217657-8 (Version None)
Quarter: 2007Q1

REPORT INFORMATION
  Report Type: 
  Country: None (occurrence: None)
  Receive Date: 20061130
  Receipt Date: 20060411
  Transmission Date: 20070707
  Serious: Yes (Hospitalization)
  Sender: FDA-Public Use
  Company Number: US200602002264

PATIENT
  Age: 38 Year
  Sex: Female

DRUGS (6)
  1. ZYPREXA [Suspect]
     Indication: BACK PAIN
     Dosage: SEE IMAGE
     Dates: start: 20021001, end: 20021101
  2. EFFEXOR [Concomitant]
  3. NEURONTIN [Concomitant]
  4. OXYCONTIN [Concomitant]
  5. ZANAFLEX [Concomitant]
  6. CLONAZEPAM [Concomitant]

REACTIONS (1)
  - KETOACIDOSIS [None]
